FAERS Safety Report 13959180 (Version 1)
Quarter: 2017Q3

REPORT INFORMATION
  Report Type: Spontaneous
  Country: US (occurrence: US)
  Receive Date: 20170911
  Receipt Date: 20170911
  Transmission Date: 20171128
  Serious: Yes (Disabling, Other)
  Sender: FDA-Public Use
  Company Number: US-TEVA-804528USA

PATIENT
  Sex: Male

DRUGS (1)
  1. AMIODARONE [Suspect]
     Active Substance: AMIODARONE

REACTIONS (18)
  - Blindness [Unknown]
  - Cerebrovascular accident [Unknown]
  - Dyspnoea [Unknown]
  - Palpitations [Unknown]
  - Thyroid disorder [Unknown]
  - Eye pain [Unknown]
  - Coordination abnormal [Unknown]
  - Off label use [Unknown]
  - Toxicity to various agents [Unknown]
  - Retinal vein occlusion [Unknown]
  - Pulmonary hypertension [Unknown]
  - Blindness unilateral [Unknown]
  - Cough [Unknown]
  - Fatigue [Unknown]
  - Adverse event [Unknown]
  - Eye irritation [Unknown]
  - Visual impairment [Unknown]
  - Thyroid function test abnormal [Unknown]

NARRATIVE: CASE EVENT DATE: 201504
